FAERS Safety Report 12320285 (Version 2)
Quarter: 2016Q2

REPORT INFORMATION
  Report Type: Report from Study
  Country: AR (occurrence: AR)
  Receive Date: 20160429
  Receipt Date: 20160601
  Transmission Date: 20160815
  Serious: Yes (Hospitalization, Other)
  Sender: FDA-Public Use
  Company Number: AR-ABBVIE-16P-007-1618126-00

PATIENT
  Sex: Male

DRUGS (1)
  1. ZEMPLAR [Suspect]
     Active Substance: PARICALCITOL
     Indication: HYPERPARATHYROIDISM SECONDARY
     Route: 042
     Dates: start: 20130601

REACTIONS (3)
  - Parathyroid gland enlargement [Unknown]
  - Blood parathyroid hormone increased [Unknown]
  - Drug ineffective [Unknown]
